FAERS Safety Report 8080187-2 (Version None)
Quarter: 2012Q1

REPORT INFORMATION
  Report Type: 
  Country: None (occurrence: None)
  Receive Date: 20120130
  Receipt Date: 20120120
  Transmission Date: 20120608
  Serious: Yes (Hospitalization)
  Sender: FDA-Public Use
  Company Number: US-BAYER-201041453NA

PATIENT
  Age: 40 Year
  Sex: Female
  Weight: 80.726 kg

DRUGS (12)
  1. YASMIN [Suspect]
     Indication: CONTRACEPTION
  2. GLUCOPHAGE [Concomitant]
     Dosage: 850 MG, UNK
     Route: 048
  3. METFFORMIN HYDROCHLORIDE [Concomitant]
     Dosage: 850 MG, UNK
     Route: 048
     Dates: start: 20061219
  4. LEVAQUIN [Concomitant]
     Dosage: 500 MG, UNK
     Route: 048
     Dates: start: 20060731
  5. AMOXICILLIN [Concomitant]
     Dosage: 500 MG, UNK
     Route: 048
     Dates: start: 20060715
  6. METOPROLOL TARTRATE [Concomitant]
     Dosage: 25 MG, UNK
     Route: 048
     Dates: start: 20070717
  7. EXCEDRIN [Concomitant]
     Route: 048
  8. YAZ [Suspect]
     Indication: ACNE
     Dosage: UNK UNK, QD
     Route: 048
  9. YASMIN [Suspect]
     Indication: ACNE
     Dosage: UNK UNK, QD
     Route: 048
  10. YAZ [Suspect]
     Indication: CONTRACEPTION
  11. DIAZEPAM [Concomitant]
     Dosage: 10 MG, UNK
     Route: 048
     Dates: start: 20061219
  12. CLARITIN-D [Concomitant]
     Route: 048

REACTIONS (4)
  - CEREBROVASCULAR ACCIDENT [None]
  - PAIN [None]
  - INJURY [None]
  - DEEP VEIN THROMBOSIS [None]
